FAERS Safety Report 5838005-6 (Version None)
Quarter: 2008Q3

REPORT INFORMATION
  Report Type: 
  Country: None (occurrence: None)
  Receive Date: 20080808
  Receipt Date: 20080211
  Transmission Date: 20090109
  Serious: No
  Sender: FDA-Public Use
  Company Number: A0709774A

PATIENT
  Sex: Male

DRUGS (1)
  1. PAXIL [Suspect]
     Indication: DRUG USE FOR UNKNOWN INDICATION
     Dosage: 20MG UNKNOWN
     Route: 048

REACTIONS (1)
  - ORGASM ABNORMAL [None]
